FAERS Safety Report 20517264 (Version 1)
Quarter: 2022Q1

REPORT INFORMATION
  Report Type: Spontaneous
  Country: US (occurrence: None)
  Receive Date: 20220224
  Receipt Date: 20220224
  Transmission Date: 20220423
  Serious: Yes (Hospitalization, Other)
  Sender: FDA-Public Use
  Company Number: None

PATIENT
  Age: 72 Year
  Sex: Male

DRUGS (1)
  1. GRALISE [Suspect]
     Active Substance: GABAPENTIN
     Indication: Pain
     Dosage: FREQUENCY : TWICE A DAY;?
     Dates: start: 202201, end: 20220202

REACTIONS (5)
  - Rash [None]
  - Swelling [None]
  - Haemorrhage [None]
  - Skin laceration [None]
  - Tachypnoea [None]

NARRATIVE: CASE EVENT DATE: 20220105
